FAERS Safety Report 4526170-2 (Version None)
Quarter: 2004Q4

REPORT INFORMATION
  Report Type: 
  Country: None (occurrence: None)
  Receive Date: 20041213
  Receipt Date: 20041213
  Transmission Date: 20050328
  Serious: Yes (Hospitalization)
  Sender: FDA-Public Use
  Company Number: None

PATIENT
  Age: 43 Year
  Sex: Male
  Weight: 133.8111 kg

DRUGS (3)
  1. IMMUNE GLOBULIN (HUMAN) [Suspect]
     Indication: POLYNEUROPATHY
     Dosage: 14GM IV INFUSED OVER 6 HRS
     Route: 042
     Dates: start: 20040729
  2. ETODOLAC [Concomitant]
  3. MULTIVITAMIN W/ MINERALS [Concomitant]

REACTIONS (4)
  - DYSPNOEA [None]
  - INFUSION RELATED REACTION [None]
  - TREMOR [None]
  - WHEEZING [None]
